FAERS Safety Report 5215296-6 (Version None)
Quarter: 2007Q1

REPORT INFORMATION
  Report Type: 
  Country: None (occurrence: None)
  Receive Date: 20061122
  Receipt Date: 20060329
  Transmission Date: 20070707
  Serious: Yes (Other)
  Sender: FDA-Public Use
  Company Number: HQWYE620103APR06

PATIENT
  Age: 43 Year
  Sex: Female
  Weight: 43.58 kg

DRUGS (13)
  1. PREMARIN [Suspect]
     Indication: VULVOVAGINAL DRYNESS
     Dosage: VAGINAL
     Route: 067
     Dates: start: 20060323, end: 20060323
  2. CLIMARA PRO [Suspect]
     Indication: MENOPAUSAL SYMPTOMS
     Dosage: 0.045MG/DAY PATCH, TRANSDERMAL
     Route: 062
     Dates: start: 20060322, end: 20060323
  3. DIFLUCAN [Concomitant]
  4. TOPAMAX [Concomitant]
  5. CLONAZEPAM [Concomitant]
  6. PREVACID [Concomitant]
  7. HYDROCODONE BITARTRATE [Concomitant]
  8. LEVOTHYROXINE SODIUM [Concomitant]
  9. BUTALBITAL, ACETAMINOPHEN  + CAFFEINE (BUTALBITAL/CAFFEINE/PARACETAMOL [Concomitant]
  10. NICOTINE [Concomitant]
  11. AMOXICILLIN [Concomitant]
  12. TRAZODONE HCL [Concomitant]
  13. INDERAL LA [Concomitant]

REACTIONS (2)
  - CONDITION AGGRAVATED [None]
  - EPILEPSY [None]
